FAERS Safety Report 16689017 (Version 1)
Quarter: 2019Q3

REPORT INFORMATION
  Report Type: Spontaneous
  Country: US (occurrence: US)
  Receive Date: 20190809
  Receipt Date: 20190809
  Transmission Date: 20191004
  Serious: Yes (Death)
  Sender: FDA-Public Use
  Company Number: US-TEVA-2019-US-1090157

PATIENT
  Sex: Male

DRUGS (1)
  1. VALSARTAN. [Suspect]
     Active Substance: VALSARTAN
     Indication: HYPERTENSION
     Route: 048
     Dates: start: 201611, end: 201710

REACTIONS (3)
  - Oesophageal carcinoma [Fatal]
  - Metastases to liver [Fatal]
  - Recalled product administered [Unknown]

NARRATIVE: CASE EVENT DATE: 20180808
